FAERS Safety Report 18475143 (Version 2)
Quarter: 2020Q4

REPORT INFORMATION
  Report Type: Report from Study
  Country: US (occurrence: US)
  Receive Date: 20201106
  Receipt Date: 20201212
  Transmission Date: 20210114
  Serious: Yes (Other)
  Sender: FDA-Public Use
  Company Number: NVSC2020US289687

PATIENT
  Sex: Male

DRUGS (2)
  1. COSENTYX [Suspect]
     Active Substance: SECUKINUMAB
     Indication: PSORIATIC ARTHROPATHY
  2. COSENTYX [Suspect]
     Active Substance: SECUKINUMAB
     Indication: PSORIASIS
     Dosage: 300 MG, OT, INJECT 2 PENS (300MG) SQ AT WEEKS 0, 1, 2, 3, AND 4. THEN INJECT 2 PENS (300MG) ONCE EVE
     Route: 058
     Dates: start: 20201007

REACTIONS (1)
  - Hallucination [Unknown]
